FAERS Safety Report 19495720 (Version 2)
Quarter: 2021Q3

REPORT INFORMATION
  Report Type: Report from Study
  Country: DE (occurrence: DE)
  Receive Date: 20210706
  Receipt Date: 20210722
  Transmission Date: 20211014
  Serious: Yes (Hospitalization)
  Sender: FDA-Public Use
  Company Number: DE-ROCHE-2772439

PATIENT
  Age: 60 Year
  Sex: Female
  Weight: 73 kg

DRUGS (5)
  1. OXALIPLATIN. [Suspect]
     Active Substance: OXALIPLATIN
     Indication: OESOPHAGEAL ADENOCARCINOMA
     Dosage: LAST DOSE GIVEN: 09/FEB/2021 (170 MG)?LAST DOSE ON 02/MAR/2021 270 MG
     Route: 042
  2. FLUOROURACIL. [Suspect]
     Active Substance: FLUOROURACIL
     Indication: OESOPHAGEAL ADENOCARCINOMA
     Dosage: LAST DOSE GIVEN: 09/FEB/2021 DOSE: 5200 MG?LAST DSOE ON 02/MAR/2021 5200 MG
     Route: 042
  3. DOCETAXEL. [Suspect]
     Active Substance: DOCETAXEL
     Indication: OESOPHAGEAL ADENOCARCINOMA
     Dosage: LAST DOSE GIVEN: 09/FEB/2021 (100 MG)?LAT DOSE ON 02/MAR/2021 170 MG
     Route: 042
  4. ATEZOLIZUMAB. [Suspect]
     Active Substance: ATEZOLIZUMAB
     Indication: OESOPHAGEAL ADENOCARCINOMA
     Dosage: LAST DOSE GIVEN: 09/FEB/2021 ?OVER 1 HOUR (4 CYCLES PERIOPERATIVE WITH FLOT)?LAST DSOE ON 16/JUN/202
     Route: 041
  5. LEUCOVORIN. [Suspect]
     Active Substance: LEUCOVORIN
     Indication: OESOPHAGEAL ADENOCARCINOMA
     Dosage: LAST DOSE GIVEN: 09/FEB/2021 (400 MG)?LAST DOSE ON 02/MAR/2021 400 MG
     Route: 042

REACTIONS (6)
  - Hypokalaemia [Recovered/Resolved]
  - Acidosis hyperchloraemic [Recovered/Resolved]
  - Vomiting [Recovered/Resolved]
  - Leukopenia [Recovered/Resolved]
  - Diarrhoea [Recovered/Resolved]
  - Nausea [Recovered/Resolved]

NARRATIVE: CASE EVENT DATE: 20210217
